FAERS Safety Report 9344243 (Version 1)
Quarter: 2013Q2

REPORT INFORMATION
  Report Type: Spontaneous
  Country: US (occurrence: US)
  Receive Date: 20130612
  Receipt Date: 20130612
  Transmission Date: 20140414
  Serious: Yes (Death, Other)
  Sender: FDA-Public Use
  Company Number: US-ELI_LILLY_AND_COMPANY-US201306002907

PATIENT
  Age: 64 Year
  Sex: Female

DRUGS (1)
  1. ADCIRCA [Suspect]
     Dosage: 40 MG, QD

REACTIONS (2)
  - Multiple injuries [Fatal]
  - Road traffic accident [Unknown]
